FAERS Safety Report 6873755-4 (Version None)
Quarter: 2010Q3

REPORT INFORMATION
  Report Type: 
  Country: None (occurrence: None)
  Receive Date: 20100723
  Receipt Date: 20090218
  Transmission Date: 20110219
  Serious: No
  Sender: FDA-Public Use
  Company Number: US-PFIZER INC-2009172979

PATIENT
  Sex: Male
  Weight: 81.646 kg

DRUGS (3)
  1. CHANTIX [Suspect]
     Indication: SMOKING CESSATION THERAPY
     Dosage: 0.5 MG, 1X/DAY
     Dates: start: 20090213
  2. SPIRIVA [Concomitant]
     Dosage: UNK
  3. XOPENEX [Concomitant]
     Dosage: UNK

REACTIONS (4)
  - AGITATION [None]
  - NAUSEA [None]
  - NERVOUSNESS [None]
  - SOMNOLENCE [None]
